FAERS Safety Report 16679595 (Version 1)
Quarter: 2019Q3

REPORT INFORMATION
  Report Type: Spontaneous
  Country: FR (occurrence: FR)
  Receive Date: 20190807
  Receipt Date: 20190807
  Transmission Date: 20191004
  Serious: Yes (Other)
  Sender: FDA-Public Use
  Company Number: FR-TEVA-2019-FR-1089192

PATIENT
  Age: 56 Year
  Sex: Female
  Weight: 48 kg

DRUGS (4)
  1. PROGESTERONE. [Suspect]
     Active Substance: PROGESTERONE
     Indication: GENDER REASSIGNMENT THERAPY
     Dosage: 100 MG PER MONTH
     Route: 030
     Dates: start: 1987, end: 2018
  2. ESTRADIOL. [Concomitant]
     Active Substance: ESTRADIOL
     Indication: GENDER REASSIGNMENT THERAPY
     Dosage: 2MG
     Route: 048
     Dates: start: 1987, end: 2018
  3. OESTRODOSE [Concomitant]
     Active Substance: ESTRADIOL
     Indication: GENDER REASSIGNMENT THERAPY
     Route: 065
     Dates: start: 1987, end: 2018
  4. ANDROCUR 50 MG, COMPRIM? [Suspect]
     Active Substance: CYPROTERONE ACETATE
     Indication: GENDER REASSIGNMENT THERAPY
     Dosage: 50MG
     Route: 048
     Dates: start: 1987, end: 2018

REACTIONS (1)
  - Meningioma [Not Recovered/Not Resolved]

NARRATIVE: CASE EVENT DATE: 20190212
